FAERS Safety Report 7674543-1 (Version None)
Quarter: 2011Q3

REPORT INFORMATION
  Report Type: 
  Country: None (occurrence: None)
  Receive Date: 20110810
  Receipt Date: 20110801
  Transmission Date: 20111222
  Serious: Yes (Hospitalization)
  Sender: FDA-Public Use
  Company Number: PHHY2011US32048

PATIENT
  Sex: Male

DRUGS (2)
  1. EXJADE [Suspect]
     Indication: IRON OVERLOAD
     Dosage: 1500 MG, QD
     Route: 048
     Dates: start: 20090101
  2. EXJADE [Suspect]
     Dosage: 2000 MG, QD
     Dates: start: 20090411

REACTIONS (4)
  - OEDEMA PERIPHERAL [None]
  - FURUNCLE [None]
  - CELLULITIS [None]
  - BLOOD CREATININE INCREASED [None]
